FAERS Safety Report 8303237-4 (Version None)
Quarter: 2012Q2

REPORT INFORMATION
  Report Type: 
  Country: None (occurrence: None)
  Receive Date: 20120423
  Receipt Date: 20120413
  Transmission Date: 20120825
  Serious: No
  Sender: FDA-Public Use
  Company Number: US-BIOGENIDEC-2012BI013160

PATIENT
  Sex: Female

DRUGS (1)
  1. TYSABRI [Suspect]
     Indication: MULTIPLE SCLEROSIS
     Route: 042
     Dates: start: 20090106, end: 20110321

REACTIONS (6)
  - ANXIETY [None]
  - DYSPNOEA [None]
  - HERNIA [None]
  - ASTHENIA [None]
  - PAIN IN EXTREMITY [None]
  - COUGH [None]
